FAERS Safety Report 4687778-7 (Version None)
Quarter: 2005Q2

REPORT INFORMATION
  Report Type: 
  Country: None (occurrence: None)
  Receive Date: 20050610
  Receipt Date: 20050602
  Transmission Date: 20051028
  Serious: Yes (Other)
  Sender: FDA-Public Use
  Company Number: 200515162GDDC

PATIENT
  Age: 71 Year
  Sex: Female

DRUGS (2)
  1. TRIAMCINOLONE [Suspect]
     Indication: NERVE ROOT COMPRESSION
     Route: 008
  2. BUPIVACAINE [Suspect]
     Indication: NERVE ROOT COMPRESSION
     Route: 008

REACTIONS (5)
  - ABDOMINAL PAIN [None]
  - AREFLEXIA [None]
  - NAUSEA [None]
  - SENSORY LOSS [None]
  - SPINAL CORD INFARCTION [None]
